FAERS Safety Report 12354766 (Version 1)
Quarter: 2016Q2

REPORT INFORMATION
  Report Type: Spontaneous
  Country: US (occurrence: None)
  Receive Date: 20160510
  Receipt Date: 20160510
  Transmission Date: 20160815
  Serious: Yes (Other)
  Sender: FDA-Public Use
  Company Number: None

PATIENT
  Age: 6 Year
  Sex: Male
  Weight: 13.15 kg

DRUGS (12)
  1. KEPPRA [Concomitant]
     Active Substance: LEVETIRACETAM
  2. PREVACID [Concomitant]
     Active Substance: LANSOPRAZOLE
  3. XOPENEX [Concomitant]
     Active Substance: LEVALBUTEROL HYDROCHLORIDE
  4. CARNATINE [Concomitant]
  5. VIT-D [Concomitant]
  6. CLONIDINE TRANSDERMAL SYSTEM [Suspect]
     Active Substance: CLONIDINE
     Indication: AGITATION
     Dosage: 2 PATCH (ES) AS NEEDED APPLIED AS MEDICATED PATCH TO SKIN
     Dates: start: 20160505, end: 20160508
  7. GABAPENTINE [Concomitant]
     Active Substance: GABAPENTIN
  8. NYSTATIN. [Concomitant]
     Active Substance: NYSTATIN
  9. PHENOBARBITAL. [Concomitant]
     Active Substance: PHENOBARBITAL
  10. ERYTHROMYCIN. [Concomitant]
     Active Substance: ERYTHROMYCIN
  11. DIURIL [Concomitant]
     Active Substance: CHLOROTHIAZIDE
  12. CLONIDINE TRANSDERMAL SYSTEM [Suspect]
     Active Substance: CLONIDINE
     Indication: PAIN MANAGEMENT
     Dosage: 2 PATCH (ES) AS NEEDED APPLIED AS MEDICATED PATCH TO SKIN
     Dates: start: 20160505, end: 20160508

REACTIONS (6)
  - Blood pressure decreased [None]
  - Incorrect drug administration rate [None]
  - Device defective [None]
  - Drug withdrawal syndrome [None]
  - Somnolence [None]
  - Product quality issue [None]

NARRATIVE: CASE EVENT DATE: 20160506
